FAERS Safety Report 24803700 (Version 1)
Quarter: 2025Q1

REPORT INFORMATION
  Report Type: Spontaneous
  Country: US (occurrence: US)
  Receive Date: 20250103
  Receipt Date: 20250103
  Transmission Date: 20250409
  Serious: No
  Sender: BRISTOL-MYERS SQUIBB COMPANY
  Company Number: US-BRISTOL-MYERS SQUIBB COMPANY-2025-000718

PATIENT
  Age: 70 Year
  Sex: Female
  Weight: 100.7 kg

DRUGS (1)
  1. REVLIMID [Suspect]
     Active Substance: LENALIDOMIDE
     Indication: Plasma cell myeloma
     Route: 048
     Dates: start: 20241210

REACTIONS (3)
  - Blood pressure increased [Recovering/Resolving]
  - Full blood count abnormal [Recovering/Resolving]
  - Off label use [Unknown]
